FAERS Safety Report 4410055-6 (Version None)
Quarter: 2004Q3

REPORT INFORMATION
  Report Type: 
  Country: None (occurrence: None)
  Receive Date: 20040728
  Receipt Date: 20040719
  Transmission Date: 20050211
  Serious: Yes (Hospitalization)
  Sender: FDA-Public Use
  Company Number: US-BRISTOL-MYERS SQUIBB COMPANY-12651253

PATIENT
  Age: 43 Year
  Sex: Male

DRUGS (3)
  1. SERZONE [Suspect]
     Dates: start: 19970101, end: 20001101
  2. INTERFERON [Concomitant]
  3. RIBOFLAVIN TAB [Concomitant]

REACTIONS (19)
  - BENIGN PROSTATIC HYPERPLASIA [None]
  - BIOPSY LIVER ABNORMAL [None]
  - CELLULITIS [None]
  - CHEST PAIN [None]
  - CHOLECYSTITIS ACUTE [None]
  - CHOLELITHIASIS [None]
  - DIARRHOEA [None]
  - FIBROSIS [None]
  - GASTROENTERITIS [None]
  - GASTROOESOPHAGEAL REFLUX DISEASE [None]
  - HAEMATURIA [None]
  - HEADACHE [None]
  - HEPATIC CIRRHOSIS [None]
  - HEPATITIS C [None]
  - HEPATITIS CHRONIC ACTIVE [None]
  - HYPERHIDROSIS [None]
  - HYPOVOLAEMIA [None]
  - INSOMNIA [None]
  - SYNCOPE VASOVAGAL [None]
